FAERS Safety Report 11574456 (Version 2)
Quarter: 2017Q3

REPORT INFORMATION
  Report Type: Spontaneous
  Country: CZ (occurrence: CZ)
  Receive Date: 20150930
  Receipt Date: 20170807
  Transmission Date: 20171127
  Serious: Yes (Death, Hospitalization, Other)
  Sender: FDA-Public Use
  Company Number: CZ-PAR PHARMACEUTICAL COMPANIES-2015SCPR014328

PATIENT

DRUGS (2)
  1. METOPROLOL. [Interacting]
     Active Substance: METOPROLOL
     Indication: PRODUCT USED FOR UNKNOWN INDICATION
     Dosage: PROBABLY 1000 MG, UNKNOWN
     Route: 048
  2. PROPAFENONE HCL ER [Suspect]
     Active Substance: PROPAFENONE
     Indication: PRODUCT USED FOR UNKNOWN INDICATION
     Dosage: PROBABLY 1500-3000 MG, UNKNOWN
     Route: 048

REACTIONS (11)
  - Toxicity to various agents [Unknown]
  - Potentiating drug interaction [Unknown]
  - Overdose [Fatal]
  - Brain oedema [Unknown]
  - Acute kidney injury [Unknown]
  - Suicide attempt [Fatal]
  - Cardiac arrest [Unknown]
  - Death [Fatal]
  - Seizure [Unknown]
  - Electrocardiogram QRS complex prolonged [Unknown]
  - Loss of consciousness [Unknown]
